FAERS Safety Report 9306560 (Version 3)
Quarter: 2013Q4

REPORT INFORMATION
  Report Type: Spontaneous
  Country: US (occurrence: US)
  Receive Date: 20130523
  Receipt Date: 20131018
  Transmission Date: 20140711
  Serious: No
  Sender: FDA-Public Use
  Company Number: US-PFIZER INC-2013157892

PATIENT
  Age: 64 Year
  Sex: Female

DRUGS (26)
  1. XELJANZ [Suspect]
     Indication: RHEUMATOID ARTHRITIS
     Dosage: 5 MG, 2X/DAY
     Route: 048
     Dates: start: 201304, end: 20130531
  2. METHOTREXATE [Concomitant]
     Indication: RHEUMATOID ARTHRITIS
     Dosage: 20 MG, WEEKLY (2.5 MG 8 TABLET)
     Dates: start: 20130218
  3. METHOTREXATE [Concomitant]
     Dosage: 20 MG, WEEKLY (2.5 MG 8 TABLET)
     Dates: start: 20130923
  4. CYMBALTA [Concomitant]
     Indication: RHEUMATOID ARTHRITIS
     Dosage: 60 MG, DAILY
     Dates: start: 20130218
  5. CYMBALTA [Concomitant]
     Dosage: 60 MG, 1 CAPSULE DR PART DAILY
     Dates: start: 20130923
  6. GABAPENTIN [Concomitant]
     Indication: RHEUMATOID ARTHRITIS
     Dosage: 300MG CAPSULE TWO IN THE MORNING, ONE IN THE AFTERNOON AND TWO BEFORE SLEEP
     Dates: start: 20130218
  7. GABAPENTIN [Concomitant]
     Dosage: 300MG CAPSULE TWO IN THE MORNING, ONE IN THE AFTERNOON AND TWO BEFORE SLEEP
     Dates: start: 20130923
  8. FOLIC ACID [Concomitant]
     Indication: RHEUMATOID ARTHRITIS
     Dosage: 3 MG, DAILY (EXCEPT ON DAY OF METHOTREXATE DOSE)
     Dates: start: 20130426
  9. FOLIC ACID [Concomitant]
     Dosage: 3 MG, DAILY (EXCEPT ON DAY OF METHOTREXATE DOSE)
     Dates: start: 20130923
  10. PRAMIPEXOLE DIHYDROCHLORIDE [Concomitant]
     Indication: RHEUMATOID ARTHRITIS
     Dosage: 0.5 MG (1-2) TABLET, AT BEDTIME
     Dates: start: 20130218
  11. PRAMIPEXOLE DIHYDROCHLORIDE [Concomitant]
     Dosage: 0.5 MG (1-2) TABLET, AT BEDTIME
     Dates: start: 20130923
  12. VOLTAREN [Concomitant]
     Indication: RHEUMATOID ARTHRITIS
     Dosage: 1% GEL DAILY
     Dates: start: 20121105
  13. VOLTAREN [Concomitant]
     Dosage: 1% GEL DAILY
     Dates: start: 20130923
  14. TRAMADOL HYDROCHLORIDE [Concomitant]
     Indication: RHEUMATOID ARTHRITIS
     Dosage: 100 MG, 3X/DAY
     Route: 048
     Dates: start: 20130218
  15. DIFLUCAN [Concomitant]
     Indication: RHEUMATOID ARTHRITIS
     Dosage: 200 MG, 3 TIMES A WEEK
     Dates: start: 20130412
  16. DIFLUCAN [Concomitant]
     Dosage: 200 MG, 3 TIMES A WEEK
     Dates: start: 20130923
  17. FLECTOR [Concomitant]
     Indication: RHEUMATOID ARTHRITIS
     Dosage: 1.3% PATCH PER 12 HOURS
     Dates: start: 20130326
  18. METOPROLOL SUCCINATE [Concomitant]
     Dosage: 50 MG, DAILY
     Route: 048
  19. PERCOCET [Concomitant]
     Dosage: 7.5MG OF OXYCODONE HYDROCHLORIDE, 325MG OF PARACETAMOL, AS NEEDED
     Route: 048
  20. NEXIUM [Concomitant]
     Dosage: 40 MG, DAILY
     Route: 048
  21. TRAZODONE HYDROCHLORIDE [Concomitant]
     Dosage: 100 MG, 1X/DAY (AT BEDTIME)
     Route: 048
  22. CRESTOR [Concomitant]
     Dosage: 10 MG, DAILY
     Route: 048
  23. HYDROCHLOROTHIAZIDE [Concomitant]
     Dosage: 12.5 MG, DAILY
     Route: 048
  24. CITRACAL + D [Concomitant]
     Dosage: 315MG CALCIUM CITRATE, 250 UNIT ERGOCALCIFEROL TABLET, 3 ORAL DAILY
     Route: 048
  25. CLARITIN [Concomitant]
     Dosage: 10 MG, DAILY
     Route: 048
  26. PRED-FORTE [Concomitant]
     Dosage: 1% SUSPENSION, TWO TIMES DAILY
     Route: 047

REACTIONS (6)
  - Drug ineffective [Unknown]
  - Dysgeusia [Unknown]
  - Contusion [Unknown]
  - Pain in extremity [Recovered/Resolved]
  - Local swelling [Recovered/Resolved]
  - Alopecia [Recovered/Resolved]
